FAERS Safety Report 18898519 (Version 1)
Quarter: 2021Q1

REPORT INFORMATION
  Report Type: Spontaneous
  Country: US (occurrence: US)
  Receive Date: 20210214
  Receipt Date: 20210214
  Transmission Date: 20210420
  Serious: Yes (Disabling, Other)
  Sender: FDA-Public Use
  Company Number: None

PATIENT
  Age: 32 Year
  Sex: Female
  Weight: 117 kg

DRUGS (1)
  1. LEVOTHYROXINE 100MG [Suspect]
     Active Substance: LEVOTHYROXINE
     Indication: BLOOD THYROID STIMULATING HORMONE INCREASED
     Route: 048

REACTIONS (16)
  - Blood thyroid stimulating hormone increased [None]
  - Temperature intolerance [None]
  - Depression [None]
  - Feeling abnormal [None]
  - Alopecia [None]
  - Fatigue [None]
  - Headache [None]
  - Insomnia [None]
  - Asthenia [None]
  - Skin disorder [None]
  - Myalgia [None]
  - Therapy change [None]
  - Constipation [None]
  - Irritability [None]
  - Weight increased [None]
  - Product quality issue [None]

NARRATIVE: CASE EVENT DATE: 20210212
